APPROVED DRUG PRODUCT: DEPO-TESTADIOL
Active Ingredient: ESTRADIOL CYPIONATE; TESTOSTERONE CYPIONATE
Strength: 2MG/ML;50MG/ML
Dosage Form/Route: INJECTABLE;INJECTION
Application: N017968 | Product #001
Applicant: PHARMACIA AND UPJOHN CO
Approved: Approved Prior to Jan 1, 1982 | RLD: No | RS: No | Type: DISCN